FAERS Safety Report 25072681 (Version 1)
Quarter: 2025Q1

REPORT INFORMATION
  Report Type: Spontaneous
  Country: CN (occurrence: CN)
  Receive Date: 20250313
  Receipt Date: 20250313
  Transmission Date: 20250408
  Serious: Yes (Other)
  Sender: ROCHE
  Company Number: CN-ROCHE-10000225293

PATIENT
  Age: 63 Year
  Sex: Male

DRUGS (6)
  1. BEVACIZUMAB [Suspect]
     Active Substance: BEVACIZUMAB
     Indication: Non-small cell lung cancer
     Route: 065
  2. BEVACIZUMAB [Suspect]
     Active Substance: BEVACIZUMAB
     Indication: Metastases to bone
  3. ICOTINIB [Suspect]
     Active Substance: ICOTINIB
     Indication: Non-small cell lung cancer
     Route: 065
  4. ICOTINIB [Suspect]
     Active Substance: ICOTINIB
     Indication: Metastases to bone
  5. CISPLATIN [Suspect]
     Active Substance: CISPLATIN
     Indication: Non-small cell lung cancer
     Route: 065
  6. CISPLATIN [Suspect]
     Active Substance: CISPLATIN
     Indication: Metastases to bone

REACTIONS (2)
  - Disease progression [Unknown]
  - Metastases to central nervous system [Unknown]
